FAERS Safety Report 4621033-6 (Version None)
Quarter: 2005Q1

REPORT INFORMATION
  Report Type: 
  Country: None (occurrence: None)
  Receive Date: 20050328
  Receipt Date: 20050311
  Transmission Date: 20050727
  Serious: Yes (Other)
  Sender: FDA-Public Use
  Company Number: GBR-2005-0001592

PATIENT
  Sex: Male

DRUGS (3)
  1. DIHYDROCODEINE BITARTRATE INJ [Suspect]
     Dates: start: 20050201
  2. LORAZEPAM [Suspect]
     Dosage: 20 TABLET, ORAL
     Route: 048
     Dates: start: 20050201
  3. HEROIN (DIAMORPHINE) [Suspect]
     Dosage: INTRAVENOUS
     Route: 042
     Dates: start: 20050201

REACTIONS (4)
  - ACCIDENTAL OVERDOSE [None]
  - AGGRESSION [None]
  - DEPRESSED LEVEL OF CONSCIOUSNESS [None]
  - VOMITING [None]
